FAERS Safety Report 6842865-X (Version None)
Quarter: 2010Q3

REPORT INFORMATION
  Report Type: 
  Country: None (occurrence: None)
  Receive Date: 20100714
  Receipt Date: 20070812
  Transmission Date: 20110219
  Serious: No
  Sender: FDA-Public Use
  Company Number: US-PFIZER INC-2007066959

PATIENT
  Sex: Female
  Weight: 90 kg

DRUGS (14)
  1. CHANTIX [Suspect]
     Indication: SMOKING CESSATION THERAPY
     Route: 048
     Dates: start: 20070801
  2. EFFEXOR [Concomitant]
  3. KLONOPIN [Concomitant]
  4. LIPITOR [Concomitant]
  5. CYMBALTA [Concomitant]
  6. ALTACE [Concomitant]
  7. ESTROGENS [Concomitant]
  8. NEXIUM [Concomitant]
  9. AMILORIDE HYDROCHLORIDE [Concomitant]
  10. ZEBETA [Concomitant]
  11. TENIDAP SODIUM [Concomitant]
  12. TORSEMIDE [Concomitant]
  13. LANTUS [Concomitant]
     Indication: DIABETES MELLITUS
  14. OXYMORPHONE [Concomitant]

REACTIONS (4)
  - DECREASED APPETITE [None]
  - HYPERHIDROSIS [None]
  - NAUSEA [None]
  - TREMOR [None]
